FAERS Safety Report 23658565 (Version 1)
Quarter: 2024Q1

REPORT INFORMATION
  Report Type: Report from Study
  Country: ES (occurrence: ES)
  Receive Date: 20240321
  Receipt Date: 20240321
  Transmission Date: 20240409
  Serious: Yes (Hospitalization)
  Sender: FDA-Public Use
  Company Number: None

PATIENT
  Age: 62 Year
  Sex: Male

DRUGS (4)
  1. VANCOMYCIN HYDROCHLORIDE [Suspect]
     Active Substance: VANCOMYCIN HYDROCHLORIDE
     Indication: Urinary tract infection
     Dosage: UNK
     Route: 042
     Dates: start: 20230719, end: 20230803
  2. GENTAMICIN [Suspect]
     Active Substance: GENTAMICIN
     Indication: Post procedural fever
     Dosage: UNK (GENTAMICIN POSTHEMODIALYSIS)
     Route: 042
     Dates: start: 20230729, end: 20230803
  3. AMPICILINA [AMPICILLIN] [Concomitant]
     Indication: Urinary tract infection
     Route: 048
     Dates: start: 20230803, end: 20230808
  4. AMIKACIN [Concomitant]
     Active Substance: AMIKACIN
     Indication: Post procedural fever
     Dosage: 1500 MG, WEEKLY (500 MG INJECTABLE 2 ML. 500 MG IV POSTHD (7.5 MG/KG/POSTHD) HD 3 TIMES A WEEK)
     Route: 042
     Dates: start: 20230803, end: 20230808

REACTIONS (2)
  - Hypertransaminasaemia [Recovered/Resolved]
  - Drug reaction with eosinophilia and systemic symptoms [Recovered/Resolved]

NARRATIVE: CASE EVENT DATE: 20230801
